FAERS Safety Report 7589915-3 (Version None)
Quarter: 2011Q3

REPORT INFORMATION
  Report Type: 
  Country: None (occurrence: None)
  Receive Date: 20110705
  Receipt Date: 20110628
  Transmission Date: 20111222
  Serious: Yes (Disabling, Other)
  Sender: FDA-Public Use
  Company Number: US-PFIZER INC-2011145392

PATIENT
  Sex: Female

DRUGS (1)
  1. DILANTIN [Suspect]
     Dosage: UNK

REACTIONS (1)
  - THYROID DISORDER [None]
